FAERS Safety Report 15483506 (Version 1)
Quarter: 2018Q4

REPORT INFORMATION
  Report Type: Spontaneous
  Country: CA (occurrence: CA)
  Receive Date: 20181010
  Receipt Date: 20181010
  Transmission Date: 20190205
  Serious: Yes (Other)
  Sender: FDA-Public Use
  Company Number: CA-BAYER-2018-185656

PATIENT
  Sex: Male

DRUGS (3)
  1. NEXAVAR [Suspect]
     Active Substance: SORAFENIB
     Indication: PRODUCT USED FOR UNKNOWN INDICATION
  2. INLYTA [Concomitant]
     Active Substance: AXITINIB
     Dosage: UNK
     Dates: start: 20160101, end: 2018
  3. INLYTA [Concomitant]
     Active Substance: AXITINIB
     Dosage: UNK
     Dates: start: 2014

REACTIONS (1)
  - Disease progression [None]
